FAERS Safety Report 5412135-5 (Version None)
Quarter: 2007Q3

REPORT INFORMATION
  Report Type: 
  Country: None (occurrence: None)
  Receive Date: 20070713
  Receipt Date: 20070330
  Transmission Date: 20080115
  Serious: No
  Sender: FDA-Public Use
  Company Number: 2007SP001166

PATIENT
  Age: 46 Year
  Sex: Female
  Weight: 85.2762 kg

DRUGS (1)
  1. LUNESTA [Suspect]
     Indication: INSOMNIA
     Dosage: 2 MG;HS; ORAL, 3 MG; HS;ORAL, 4.5 MG; HS; ORAL
     Route: 048
     Dates: start: 20070101

REACTIONS (3)
  - DYSGEUSIA [None]
  - MIDDLE INSOMNIA [None]
  - STOMACH DISCOMFORT [None]
